FAERS Safety Report 4871608-4 (Version None)
Quarter: 2005Q4

REPORT INFORMATION
  Report Type: 
  Country: None (occurrence: None)
  Receive Date: 20051230
  Receipt Date: 20051208
  Transmission Date: 20060501
  Serious: Yes (Death, Other)
  Sender: FDA-Public Use
  Company Number: JP200511000728

PATIENT
  Age: 31 Year
  Sex: Male

DRUGS (7)
  1. ZYPREXA [Suspect]
     Indication: SCHIZOPHRENIA
     Dosage: SEE IMAGE
     Route: 048
     Dates: start: 20050922, end: 20051003
  2. ZYPREXA [Suspect]
     Indication: SCHIZOPHRENIA
     Dosage: SEE IMAGE
     Route: 048
     Dates: start: 20051004
  3. ZYPREXA [Suspect]
     Indication: SCHIZOPHRENIA
     Dosage: 5 MG, DAILY (1/D), ORAL
     Route: 048
     Dates: start: 20050927, end: 20051003
  4. RISPERIDONE (RISPERIDONE) POWDER, FOR SUSPENSION [Concomitant]
  5. CHLORPROMAZINE (CHLOPROMAZINE) POWDER, FOR SUSPENSION [Concomitant]
  6. BIPERIDEN (BIPERIDEN) [Concomitant]
  7. LORAZEPAM [Concomitant]

REACTIONS (3)
  - COMPLETED SUICIDE [None]
  - ELECTRIC SHOCK [None]
  - HALLUCINATION, AUDITORY [None]
